FAERS Safety Report 9046940 (Version 1)
Quarter: 2013Q1

REPORT INFORMATION
  Report Type: Report from Study
  Country: CA (occurrence: CA)
  Receive Date: 20130204
  Receipt Date: 20130204
  Transmission Date: 20140127
  Serious: Yes (Hospitalization)
  Sender: FDA-Public Use
  Company Number: CA-JNJFOC-20130113663

PATIENT
  Age: 61 None
  Sex: Male
  Weight: 69.5 kg

DRUGS (9)
  1. REMICADE [Suspect]
     Indication: CROHN^S DISEASE
     Route: 042
     Dates: start: 20110323
  2. REMICADE [Suspect]
     Indication: CROHN^S DISEASE
     Dosage: 22ND INFUSION
     Route: 042
     Dates: start: 20130123
  3. METHOTREXATE [Suspect]
     Indication: PRODUCT USED FOR UNKNOWN INDICATION
     Route: 065
     Dates: start: 20121216, end: 20121230
  4. SYNTHROID [Concomitant]
     Route: 065
  5. VITAMIN B12 [Concomitant]
     Route: 065
  6. VITAMIN D [Concomitant]
     Route: 065
  7. MULTIVIT [Concomitant]
     Route: 065
  8. PROBIOTICS [Concomitant]
     Route: 065
  9. SALOFALK [Concomitant]
     Route: 065

REACTIONS (5)
  - Toxicity to various agents [Recovered/Resolved]
  - Epistaxis [Recovered/Resolved]
  - Stomatitis [Recovered/Resolved]
  - White blood cell count decreased [Recovered/Resolved]
  - Infection [Recovered/Resolved]
